FAERS Safety Report 16902151 (Version 2)
Quarter: 2019Q4

REPORT INFORMATION
  Report Type: Spontaneous
  Country: FR (occurrence: FR)
  Receive Date: 20191010
  Receipt Date: 20191211
  Transmission Date: 20200122
  Serious: Yes (Hospitalization, Other)
  Sender: FDA-Public Use
  Company Number: FR-AUROBINDO-AUR-APL-2019-065378

PATIENT
  Age: 31 Year
  Sex: Female
  Weight: 164 kg

DRUGS (9)
  1. MEROPENEM. [Suspect]
     Active Substance: MEROPENEM
     Dosage: 8 GRAM, DAILY
     Route: 042
     Dates: start: 20190813, end: 20190814
  2. GENTAMICINE [Suspect]
     Active Substance: GENTAMICIN
     Indication: SEPTIC SHOCK
     Dosage: UNK
     Route: 042
     Dates: start: 20190805, end: 20190805
  3. MEROPENEM. [Suspect]
     Active Substance: MEROPENEM
     Indication: SEPTIC SHOCK
     Dosage: UNK
     Route: 042
     Dates: start: 20190805, end: 20190806
  4. AZTREONAM. [Suspect]
     Active Substance: AZTREONAM
     Indication: SEPTIC SHOCK
     Dosage: UNK
     Route: 042
     Dates: start: 20190814, end: 20190817
  5. VANCOMYCINE [Suspect]
     Active Substance: VANCOMYCIN
     Indication: SEPTIC SHOCK
     Dosage: 2500 MILLIGRAM, DAILY
     Route: 042
     Dates: start: 20190805, end: 20190825
  6. AMIKACINE [Suspect]
     Active Substance: AMIKACIN
     Indication: SEPTIC SHOCK
     Dosage: UNK
     Route: 042
     Dates: start: 20190814, end: 20190817
  7. CEFTOLOZANE [Suspect]
     Active Substance: CEFTOLOZANE
     Indication: SEPTIC SHOCK
     Dosage: UNK
     Route: 042
     Dates: start: 20190817, end: 20190825
  8. TAZOBACTAM [Suspect]
     Active Substance: TAZOBACTAM
     Indication: SEPTIC SHOCK
     Dosage: UNK
     Route: 042
     Dates: start: 20190817, end: 20190825
  9. AUGMENTIN [Suspect]
     Active Substance: AMOXICILLIN\CLAVULANATE POTASSIUM
     Indication: SEPTIC SHOCK
     Dosage: UNK
     Route: 042
     Dates: start: 20190811, end: 20190813

REACTIONS (6)
  - Toxic skin eruption [Recovering/Resolving]
  - Pruritus [Recovered/Resolved]
  - Rash [Recovered/Resolved]
  - Acute kidney injury [Not Recovered/Not Resolved]
  - Accidental overdose [Recovered/Resolved]
  - Eosinophilia [Not Recovered/Not Resolved]

NARRATIVE: CASE EVENT DATE: 20190813
